FAERS Safety Report 17950696 (Version 2)
Quarter: 2020Q3

REPORT INFORMATION
  Report Type: Spontaneous
  Country: US (occurrence: US)
  Receive Date: 20200626
  Receipt Date: 20200701
  Transmission Date: 20201103
  Serious: No
  Sender: FDA-Public Use
  Company Number: US-PFIZER INC-2020246915

PATIENT
  Age: 52 Year
  Sex: Female

DRUGS (1)
  1. IBRANCE [Suspect]
     Active Substance: PALBOCICLIB
     Dosage: UNK
     Dates: start: 20200611

REACTIONS (7)
  - Malaise [Unknown]
  - Nausea [Unknown]
  - Taste disorder [Unknown]
  - Oral mucosal exfoliation [Unknown]
  - Headache [Unknown]
  - Stomatitis [Unknown]
  - Abdominal discomfort [Unknown]
